FAERS Safety Report 10268002 (Version 3)
Quarter: 2014Q3

REPORT INFORMATION
  Report Type: Spontaneous
  Country: US (occurrence: US)
  Receive Date: 20140630
  Receipt Date: 20140812
  Transmission Date: 20150326
  Serious: No
  Sender: FDA-Public Use
  Company Number: US-ASTRAZENECA-2013SE71250

PATIENT
  Age: 32206 Day
  Sex: Female
  Weight: 66.2 kg

DRUGS (9)
  1. SYMBICORT [Suspect]
     Active Substance: BUDESONIDE\FORMOTEROL FUMARATE DIHYDRATE
     Indication: DYSPNOEA
     Dosage: 160MCG/4.5MCG, 2 PUFFS, TWO TIMES A DAY
     Route: 055
     Dates: end: 20140618
  2. SYMBICORT [Suspect]
     Active Substance: BUDESONIDE\FORMOTEROL FUMARATE DIHYDRATE
     Indication: CARDIAC DISORDER
     Dosage: 160MCG/4.5MCG, 2 PUFFS, TWO TIMES A DAY
     Route: 055
     Dates: end: 20140618
  3. OXYGEN. [Concomitant]
     Active Substance: OXYGEN
  4. SYMBICORT [Suspect]
     Active Substance: BUDESONIDE\FORMOTEROL FUMARATE DIHYDRATE
     Indication: DYSPNOEA
     Dosage: 2 PUFFS, TWO TIMES A DAY
     Route: 055
     Dates: end: 2013
  5. SYMBICORT [Suspect]
     Active Substance: BUDESONIDE\FORMOTEROL FUMARATE DIHYDRATE
     Indication: LUNG DISORDER
     Dosage: 160MCG/4.5MCG, 2 PUFFS, TWO TIMES A DAY
     Route: 055
     Dates: end: 20140618
  6. SYMBICORT [Suspect]
     Active Substance: BUDESONIDE\FORMOTEROL FUMARATE DIHYDRATE
     Indication: CARDIAC FAILURE
     Dosage: 2 PUFFS, TWO TIMES A DAY
     Route: 055
     Dates: end: 2013
  7. SYMBICORT [Suspect]
     Active Substance: BUDESONIDE\FORMOTEROL FUMARATE DIHYDRATE
     Indication: LUNG DISORDER
     Dosage: 2 PUFFS, TWO TIMES A DAY
     Route: 055
     Dates: end: 2013
  8. SYMBICORT [Suspect]
     Active Substance: BUDESONIDE\FORMOTEROL FUMARATE DIHYDRATE
     Indication: CARDIAC FAILURE
     Dosage: 160MCG/4.5MCG, 2 PUFFS, TWO TIMES A DAY
     Route: 055
     Dates: end: 20140618
  9. SYMBICORT [Suspect]
     Active Substance: BUDESONIDE\FORMOTEROL FUMARATE DIHYDRATE
     Indication: CARDIAC DISORDER
     Dosage: 2 PUFFS, TWO TIMES A DAY
     Route: 055
     Dates: end: 2013

REACTIONS (8)
  - Body height decreased [Unknown]
  - Dyspnoea [Unknown]
  - Off label use [Unknown]
  - Drug dose omission [Unknown]
  - Asthenia [Unknown]
  - Weight fluctuation [Unknown]
  - Anorectal disorder [Unknown]
  - Hypoacusis [Unknown]

NARRATIVE: CASE EVENT DATE: 20130921
